FAERS Safety Report 9217402 (Version 2)
Quarter: 2013Q2

REPORT INFORMATION
  Report Type: Spontaneous
  Country: US (occurrence: None)
  Receive Date: 20130404
  Receipt Date: 20130410
  Transmission Date: 20140414
  Serious: Yes (Hospitalization, Other)
  Sender: FDA-Public Use
  Company Number: JPI-P-030773

PATIENT
  Age: 71 Year
  Sex: Female
  Weight: 106.6 kg

DRUGS (17)
  1. XYREM [Suspect]
     Indication: HYPERSOMNIA
     Route: 048
     Dates: start: 201004
  2. XYREM [Suspect]
     Indication: NARCOLEPSY
     Route: 048
     Dates: start: 201004
  3. XYREM [Suspect]
     Route: 048
     Dates: start: 201004
  4. METHADONE [Concomitant]
  5. AMLODIPINE BESYLATE [Concomitant]
  6. COZAAR [Concomitant]
  7. OXYBUTYNIN [Concomitant]
  8. LEVOTHYROXINE SODIUM [Concomitant]
  9. ASPIRIN [Concomitant]
  10. SPIRONOLACTONE [Concomitant]
  11. VERAPAMIL [Concomitant]
  12. VITAMIN D [Concomitant]
  13. CALCIUM AND MAGNESIUM [Concomitant]
  14. TRYPTOPHAN [Concomitant]
  15. VITAMIN B COMPLEX [Concomitant]
  16. EVENING PRIMROSE OIL [Concomitant]
  17. OMEGA OIL [Concomitant]

REACTIONS (3)
  - Pyrexia [None]
  - Sinusitis [None]
  - Spinal fusion surgery [None]
